FAERS Safety Report 20581077 (Version 3)
Quarter: 2022Q3

REPORT INFORMATION
  Report Type: Report from Study
  Country: CA (occurrence: CA)
  Receive Date: 20220311
  Receipt Date: 20220804
  Transmission Date: 20221026
  Serious: Yes (Other)
  Sender: FDA-Public Use
  Company Number: CA-AUROBINDO-AUR-APL-2022-007813

PATIENT
  Sex: Female

DRUGS (6)
  1. LOSARTAN [Suspect]
     Active Substance: LOSARTAN
     Indication: Hypertension
     Dosage: UNK
     Route: 065
  2. LOSARTAN [Suspect]
     Active Substance: LOSARTAN
     Indication: Peripartum cardiomyopathy
  3. PERINDOPRIL [Suspect]
     Active Substance: PERINDOPRIL
     Indication: Peripartum cardiomyopathy
     Dosage: UNK
     Route: 065
  4. PERINDOPRIL [Suspect]
     Active Substance: PERINDOPRIL
     Indication: Hypertension
  5. LASIX [Concomitant]
     Active Substance: FUROSEMIDE
     Indication: Peripartum cardiomyopathy
     Dosage: UNK
     Route: 065
  6. SPIRONOLACTONE [Concomitant]
     Active Substance: SPIRONOLACTONE
     Indication: Peripartum cardiomyopathy
     Dosage: UNK
     Route: 065

REACTIONS (5)
  - Oligohydramnios [Unknown]
  - Maternal exposure during pregnancy [Unknown]
  - Ultrasound antenatal screen abnormal [Unknown]
  - Contraindicated product administered [Unknown]
  - Premature delivery [Unknown]
